FAERS Safety Report 25920540 (Version 2)
Quarter: 2025Q4

REPORT INFORMATION
  Report Type: Spontaneous
  Country: US (occurrence: US)
  Receive Date: 20251014
  Receipt Date: 20251014
  Transmission Date: 20260117
  Serious: Yes (Hospitalization)
  Sender: ASTELLAS
  Company Number: US-ASTELLAS-2025-AER-055615

PATIENT
  Age: 72 Year
  Sex: Female

DRUGS (2)
  1. MYRBETRIQ [Suspect]
     Active Substance: MIRABEGRON
     Indication: Hypertonic bladder
     Dosage: EXTENDED-RELEASE TABLETS
     Route: 050
     Dates: start: 2024, end: 202508
  2. MYRBETRIQ [Suspect]
     Active Substance: MIRABEGRON
     Dosage: EXTENDED-RELEASE TABLETS
     Route: 050
     Dates: start: 202509

REACTIONS (4)
  - Hydrocephalus [Unknown]
  - Infection [Unknown]
  - Memory impairment [Unknown]
  - Drug ineffective [Unknown]
